FAERS Safety Report 10196692 (Version 1)
Quarter: 2014Q2

REPORT INFORMATION
  Report Type: Spontaneous
  Country: GB (occurrence: GB)
  Receive Date: 20140527
  Receipt Date: 20140527
  Transmission Date: 20141212
  Serious: Yes (Death, Other)
  Sender: FDA-Public Use
  Company Number: GB-CELGENEUS-167-21660-14052289

PATIENT
  Age: 55 Year
  Sex: Male
  Weight: 70 kg

DRUGS (5)
  1. ABRAXANE [Suspect]
     Indication: PANCREATIC CARCINOMA METASTATIC
     Dosage: 125
     Route: 041
     Dates: start: 201201
  2. ABRAXANE [Suspect]
     Indication: METASTASES TO LUNG
  3. GEMCITABINE [Suspect]
     Indication: PANCREATIC CARCINOMA METASTATIC
     Dosage: 1000
     Route: 041
     Dates: start: 201201
  4. GEMCITABINE [Suspect]
     Indication: METASTASES TO LUNG
  5. CAPECITABINE [Concomitant]
     Indication: PANCREATIC CARCINOMA METASTATIC
     Route: 065
     Dates: start: 201208, end: 201209

REACTIONS (7)
  - Death [Fatal]
  - Pancreatic carcinoma [Not Recovered/Not Resolved]
  - Fatigue [Unknown]
  - Neuropathy peripheral [Unknown]
  - Neutropenia [Unknown]
  - Anaemia [Unknown]
  - Nausea [Unknown]
